FAERS Safety Report 12317661 (Version 1)
Quarter: 2016Q2

REPORT INFORMATION
  Report Type: Spontaneous
  Country: FR (occurrence: FR)
  Receive Date: 20160429
  Receipt Date: 20160429
  Transmission Date: 20160815
  Serious: Yes (Hospitalization)
  Sender: FDA-Public Use
  Company Number: FR-009507513-1604FRA010105

PATIENT
  Age: 93 Year
  Sex: Male

DRUGS (2)
  1. HYZAAR [Suspect]
     Active Substance: HYDROCHLOROTHIAZIDE\LOSARTAN POTASSIUM
     Indication: DRUG ADMINISTRATION ERROR
     Dosage: 50 MG, ONCE
     Route: 048
     Dates: start: 20160316
  2. TOPALGIC LP [Suspect]
     Active Substance: TRAMADOL
     Indication: DRUG ADMINISTRATION ERROR
     Dosage: 100 MG, ONCE
     Route: 048
     Dates: start: 20160316, end: 20160316

REACTIONS (4)
  - Drug administration error [Recovered/Resolved]
  - Oxygen saturation decreased [Recovered/Resolved]
  - Pneumonia aspiration [Recovered/Resolved]
  - Hypotension [Recovered/Resolved]

NARRATIVE: CASE EVENT DATE: 20160316
